FAERS Safety Report 24601805 (Version 1)
Quarter: 2024Q4

REPORT INFORMATION
  Report Type: Spontaneous
  Country: FR (occurrence: FR)
  Receive Date: 20241111
  Receipt Date: 20241111
  Transmission Date: 20250114
  Serious: Yes (Hospitalization)
  Sender: ACCORD
  Company Number: None

PATIENT
  Age: 68 Year
  Sex: Female
  Weight: 72 kg

DRUGS (11)
  1. ATORVASTATIN [Suspect]
     Active Substance: ATORVASTATIN
     Indication: Infarction
     Dosage: STRENGTH: 80MG
     Dates: end: 20240905
  2. FUROSEMIDE [Suspect]
     Active Substance: FUROSEMIDE
     Indication: Product used for unknown indication
     Dates: end: 20240905
  3. ASPIRIN [Concomitant]
     Active Substance: ASPIRIN
     Indication: Infarction
     Dosage: STRENGTH: 75MG
  4. TICAGRELOR [Concomitant]
     Active Substance: TICAGRELOR
     Indication: Infarction
     Dosage: STRENGTH: 50 MG
  5. ALDACTONE [Concomitant]
     Active Substance: SPIRONOLACTONE
  6. BISOPROLOL FUMARATE [Concomitant]
     Active Substance: BISOPROLOL FUMARATE
     Indication: Infarction
  7. VALSARTAN [Concomitant]
     Active Substance: VALSARTAN
     Indication: Infarction
     Dates: end: 20240905
  8. VENLAFAXINE HYDROCHLORIDE [Concomitant]
     Active Substance: VENLAFAXINE HYDROCHLORIDE
     Indication: Mixed anxiety and depressive disorder
  9. ZOLPIDEM TARTRATE [Concomitant]
     Active Substance: ZOLPIDEM TARTRATE
     Indication: Mixed anxiety and depressive disorder
  10. OXAZEPAM [Concomitant]
     Active Substance: OXAZEPAM
     Indication: Mixed anxiety and depressive disorder
  11. VALSARTAN [Concomitant]
     Active Substance: VALSARTAN
     Indication: Infarction
     Dates: start: 20240912

REACTIONS (1)
  - Hepatic cytolysis [Recovering/Resolving]

NARRATIVE: CASE EVENT DATE: 20240801
